FAERS Safety Report 7214336-2 (Version None)
Quarter: 2011Q1

REPORT INFORMATION
  Report Type: 
  Country: None (occurrence: None)
  Receive Date: 20110107
  Receipt Date: 20101231
  Transmission Date: 20110831
  Serious: Yes (Death)
  Sender: FDA-Public Use
  Company Number: US-PFIZER INC-2011001588

PATIENT
  Age: 16 Year
  Sex: Female

DRUGS (7)
  1. METOPROLOL SUCCINATE, HYDROCHLOROTHIAZIDE [Suspect]
  2. BUPROPION [Suspect]
  3. LAMOTRIGINE [Suspect]
  4. AMLODIPINE BESYLATE [Suspect]
  5. ALL OTHER THERAPEUTIC PRODUCTS [Suspect]
  6. QUETIAPINE [Suspect]
  7. ACETYLSALICYLIC ACID [Suspect]

REACTIONS (2)
  - INTENTIONAL DRUG MISUSE [None]
  - COMPLETED SUICIDE [None]
